FAERS Safety Report 8362082 (Version 9)
Quarter: 2012Q4

REPORT INFORMATION
  Report Type: 
  Country: US (occurrence: US)
  Receive Date: 20120130
  Receipt Date: 20120829
  Transmission Date: 20130627
  Serious: Yes (Hospitalization, Other)
  Sender: FDA-Public Use
  Company Number: US-009507513-1201USA03706

PATIENT

DRUGS (7)
  1. FOSAMAX [Suspect]
     Indication: OSTEOPENIA
     Dosage: 10 mg, UNK
     Route: 048
     Dates: start: 20000222, end: 20000902
  2. FOSAMAX [Suspect]
     Indication: OSTEOPOROSIS
     Dosage: 70 mg, QW
     Route: 048
     Dates: start: 20000705, end: 20070814
  3. FOSAMAX [Suspect]
     Indication: OSTEOPENIA
     Dosage: 70 mg, UNK
     Route: 048
     Dates: start: 20080527, end: 20081208
  4. FOSAMAX [Suspect]
     Indication: OSTEOPOROSIS
  5. MK-9355 [Concomitant]
     Indication: NEPHRECTOMY
     Route: 048
     Dates: start: 1991
  6. FOSAMAX [Suspect]
     Dosage: 70 mg, UNK
     Route: 048
     Dates: start: 20090115
  7. FOSAMAX [Suspect]
     Dosage: 70 mg, QW
     Route: 048
     Dates: start: 20080318

REACTIONS (51)
  - Femur fracture [Recovering/Resolving]
  - Spinal fracture [Unknown]
  - Adrenal disorder [Unknown]
  - Hearing impaired [Unknown]
  - Low turnover osteopathy [Unknown]
  - Tooth disorder [Unknown]
  - Hyperparathyroidism [Unknown]
  - Spinal column stenosis [Unknown]
  - Spinal disorder [Unknown]
  - Intervertebral disc protrusion [Unknown]
  - Skin lesion [Unknown]
  - Helicobacter gastritis [Unknown]
  - Obesity [Unknown]
  - Weight decreased [Unknown]
  - Hyperlipidaemia [Unknown]
  - Blood cholesterol increased [Unknown]
  - Spinal cord injury [Unknown]
  - Fractured coccyx [Unknown]
  - Hypothyroidism [Unknown]
  - Hypoparathyroidism [Unknown]
  - Arthritis [Unknown]
  - Cystitis [Unknown]
  - Bronchitis [Unknown]
  - Coronary artery disease [Unknown]
  - Haemorrhoids [Unknown]
  - Mitral valve prolapse [Unknown]
  - Hypertension [Unknown]
  - Sciatica [Unknown]
  - Renal hypertrophy [Unknown]
  - Bladder disorder [Unknown]
  - Phlebolith [Unknown]
  - Spinal osteoarthritis [Unknown]
  - Diverticulum intestinal [Unknown]
  - Major depression [Unknown]
  - Neurodegenerative disorder [Unknown]
  - Cognitive disorder [Unknown]
  - Spinal osteoarthritis [Unknown]
  - Spinal compression fracture [Not Recovered/Not Resolved]
  - Intervertebral disc displacement [Unknown]
  - Radiculopathy [Unknown]
  - Breakthrough pain [Unknown]
  - Osteoarthritis [Unknown]
  - Injection related reaction [Unknown]
  - Carpal tunnel syndrome [Unknown]
  - Fall [Unknown]
  - Head injury [Unknown]
  - Fungal skin infection [Unknown]
  - Gastrooesophageal reflux disease [Unknown]
  - Constipation [Unknown]
  - Dyspepsia [Unknown]
  - Gastritis [Unknown]
